FAERS Safety Report 5866525-7 (Version None)
Quarter: 2008Q3

REPORT INFORMATION
  Report Type: 
  Country: None (occurrence: None)
  Receive Date: 20080902
  Receipt Date: 20080902
  Transmission Date: 20090109
  Serious: Yes (Hospitalization)
  Sender: FDA-Public Use
  Company Number: PHEH1996US09890

PATIENT
  Sex: Male

DRUGS (11)
  1. SANDIMMUNE [Suspect]
     Route: 048
     Dates: start: 19960503, end: 19960905
  2. IMURAN [Concomitant]
  3. NORVASC [Concomitant]
  4. THEOPHYLLINE [Concomitant]
  5. AMLODIPINE [Concomitant]
  6. HALDOL SOLUTAB [Concomitant]
  7. AXID [Concomitant]
  8. COLACE (DOCUSATE SODIUM) [Concomitant]
  9. XANAX [Concomitant]
  10. FERROUS SULFATE TAB [Concomitant]
  11. PREDNISONE TAB [Concomitant]

REACTIONS (2)
  - CARDIOGENIC SHOCK [None]
  - TRANSPLANT REJECTION [None]
